FAERS Safety Report 17497170 (Version 1)
Quarter: 2020Q1

REPORT INFORMATION
  Report Type: Spontaneous
  Country: US (occurrence: US)
  Receive Date: 20200304
  Receipt Date: 20200304
  Transmission Date: 20200409
  Serious: No
  Sender: FDA-Public Use
  Company Number: US-PIERREL PHARMA S.P.A.-2019PIR00002

PATIENT
  Age: 61 Year

DRUGS (7)
  1. CELEXA [Concomitant]
     Active Substance: CITALOPRAM HYDROBROMIDE
  2. ^THYROXIN^ [Concomitant]
  3. IBUPROFEN. [Concomitant]
     Active Substance: IBUPROFEN
  4. PLAQUENIL [Concomitant]
     Active Substance: HYDROXYCHLOROQUINE SULFATE
  5. ORABLOC [Suspect]
     Active Substance: ARTICAINE HYDROCHLORIDE\EPINEPHRINE BITARTRATE
     Indication: ANAESTHESIA
     Dosage: 1 DOSAGE UNITS, ONCE
     Route: 004
     Dates: start: 20170719, end: 20170719
  6. ZANTAC [Concomitant]
     Active Substance: RANITIDINE HYDROCHLORIDE
  7. VITAMIN D [Concomitant]
     Active Substance: VITAMIN D NOS

REACTIONS (2)
  - Hypoaesthesia oral [Recovered/Resolved]
  - Therapeutic product effect prolonged [Recovered/Resolved]

NARRATIVE: CASE EVENT DATE: 20170719
